FAERS Safety Report 24429397 (Version 3)
Quarter: 2024Q4

REPORT INFORMATION
  Report Type: Spontaneous
  Country: JP (occurrence: JP)
  Receive Date: 20241011
  Receipt Date: 20241119
  Transmission Date: 20250115
  Serious: Yes (Hospitalization, Other)
  Sender: BRISTOL-MYERS SQUIBB COMPANY
  Company Number: JP-TAKEDA-2024TJP011874

PATIENT
  Age: 86 Year
  Sex: Male

DRUGS (2)
  1. NIVOLUMAB [Suspect]
     Active Substance: NIVOLUMAB
     Indication: Renal cell carcinoma
     Dosage: UNK
     Dates: start: 20231120, end: 20240618
  2. CABOMETYX [Suspect]
     Active Substance: CABOZANTINIB S-MALATE
     Indication: Renal cell carcinoma
     Dosage: 20 MG, QD
     Route: 048
     Dates: start: 20231120, end: 20240718

REACTIONS (7)
  - Interstitial lung disease [Recovered/Resolved]
  - Pneumothorax [Recovered/Resolved]
  - Pneumomediastinum [Recovered/Resolved]
  - Subcutaneous emphysema [Recovered/Resolved]
  - Gamma-glutamyltransferase increased [Unknown]
  - Pneumonia aspiration [Unknown]
  - Pleural effusion [Unknown]

NARRATIVE: CASE EVENT DATE: 20240701
